FAERS Safety Report 7648371-7 (Version None)
Quarter: 2011Q3

REPORT INFORMATION
  Report Type: 
  Country: None (occurrence: None)
  Receive Date: 20110801
  Receipt Date: 20110725
  Transmission Date: 20111222
  Serious: Yes (Other)
  Sender: FDA-Public Use
  Company Number: US-ABBOTT-11P-163-0841573-00

PATIENT
  Age: 51 Year
  Sex: Male
  Weight: 45.4 kg

DRUGS (8)
  1. LYRICA [Suspect]
     Route: 048
  2. LYRICA [Suspect]
     Indication: BACK INJURY
     Route: 048
  3. NEURONTIN [Suspect]
     Indication: PAIN
     Route: 048
     Dates: start: 19980101
  4. OXYCODONE HYDROCHLORIDE [Suspect]
     Indication: PAIN
     Route: 048
  5. VICODIN [Suspect]
     Indication: PAIN
     Route: 048
  6. LYRICA [Suspect]
     Indication: NEUROPATHY PERIPHERAL
     Route: 048
     Dates: start: 20110101
  7. SOMA [Suspect]
     Indication: PAIN
     Route: 048
  8. PRAVASTATIN [Concomitant]
     Indication: BLOOD CHOLESTEROL ABNORMAL

REACTIONS (8)
  - ANXIETY [None]
  - DISTURBANCE IN ATTENTION [None]
  - BURNING SENSATION [None]
  - PAIN IN EXTREMITY [None]
  - WALKING AID USER [None]
  - DRUG INEFFECTIVE [None]
  - DYSSTASIA [None]
  - MOVEMENT DISORDER [None]
